FAERS Safety Report 19411947 (Version 1)
Quarter: 2021Q2

REPORT INFORMATION
  Report Type: Spontaneous
  Country: US (occurrence: US)
  Receive Date: 20210614
  Receipt Date: 20210614
  Transmission Date: 20210717
  Serious: No
  Sender: FDA-Public Use
  Company Number: US-BIOVITRUM-2021US5129

PATIENT
  Age: 27 Year
  Sex: Male

DRUGS (1)
  1. KINERET [Suspect]
     Active Substance: ANAKINRA
     Indication: AUTOINFLAMMATORY DISEASE
     Route: 058
     Dates: start: 202102

REACTIONS (3)
  - Product dose omission issue [Unknown]
  - Off label use [Unknown]
  - Decreased activity [Unknown]

NARRATIVE: CASE EVENT DATE: 202102
